FAERS Safety Report 4990865-7 (Version None)
Quarter: 2006Q2

REPORT INFORMATION
  Report Type: 
  Country: None (occurrence: None)
  Receive Date: 20060428
  Receipt Date: 20060416
  Transmission Date: 20061013
  Serious: Yes (Other)
  Sender: FDA-Public Use
  Company Number: HQWYE926321APR06

PATIENT
  Sex: Male

DRUGS (2)
  1. EFFEXOR [Suspect]
     Indication: ANXIETY
     Dosage: 37.5 MG FREQUENCY ; ^WEANING OFF DOSE AND FREQUENCY UNSPECIFIED
     Dates: start: 20030101, end: 20060301
  2. EFFEXOR [Suspect]
     Indication: ANXIETY
     Dosage: 37.5 MG FREQUENCY ; ^WEANING OFF DOSE AND FREQUENCY UNSPECIFIED
     Dates: start: 20060301

REACTIONS (13)
  - ANGER [None]
  - ANXIETY [None]
  - DEPRESSION [None]
  - DISORIENTATION [None]
  - DRUG WITHDRAWAL SYNDROME [None]
  - HEART RATE INCREASED [None]
  - MAJOR DEPRESSION [None]
  - MEMORY IMPAIRMENT [None]
  - NIGHTMARE [None]
  - PARAESTHESIA [None]
  - PARANOIA [None]
  - SUICIDAL IDEATION [None]
  - THINKING ABNORMAL [None]
